FAERS Safety Report 19098687 (Version 1)
Quarter: 2021Q2

REPORT INFORMATION
  Report Type: Spontaneous
  Country: ES (occurrence: ES)
  Receive Date: 20210406
  Receipt Date: 20210406
  Transmission Date: 20210717
  Serious: Yes (Other)
  Sender: FDA-Public Use
  Company Number: ES-SA-2021SA104538

PATIENT
  Sex: Female
  Weight: 74.4 kg

DRUGS (1)
  1. LANTUS [Suspect]
     Active Substance: INSULIN GLARGINE
     Indication: TYPE 2 DIABETES MELLITUS
     Dosage: 31 IU
     Route: 058

REACTIONS (4)
  - Blood pressure increased [Recovered/Resolved]
  - Hyperglycaemia [Recovered/Resolved]
  - Nervousness [Unknown]
  - Blood glucose fluctuation [Unknown]
